FAERS Safety Report 8007365-2 (Version None)
Quarter: 2011Q4

REPORT INFORMATION
  Report Type: 
  Country: None (occurrence: None)
  Receive Date: 20111227
  Receipt Date: 20111220
  Transmission Date: 20120403
  Serious: Yes (Hospitalization)
  Sender: FDA-Public Use
  Company Number: US-BAYER-2011-122547

PATIENT
  Age: 29 Year
  Sex: Male
  Weight: 113 kg

DRUGS (1)
  1. ASPIRIN [Suspect]
     Indication: NASOPHARYNGITIS
     Dosage: 81.25 MG, ONCE
     Route: 048
     Dates: start: 19840322, end: 19840322

REACTIONS (13)
  - PYREXIA [None]
  - CYANOSIS [None]
  - UNRESPONSIVE TO STIMULI [None]
  - SNEEZING [None]
  - COLD SWEAT [None]
  - REYE'S SYNDROME [None]
  - RHINORRHOEA [None]
  - BRAIN INJURY [None]
  - COMA [None]
  - BLOOD GLUCOSE ABNORMAL [None]
  - COUGH [None]
  - HYPERSENSITIVITY [None]
  - CONVULSION [None]
